FAERS Safety Report 11414511 (Version 2)
Quarter: 2015Q3

REPORT INFORMATION
  Report Type: Report from Study
  Country: US (occurrence: US)
  Receive Date: 20150824
  Receipt Date: 20150907
  Transmission Date: 20151125
  Serious: No
  Sender: FDA-Public Use
  Company Number: US-AMGEN-USASP2015083673

PATIENT
  Age: 61 Year
  Sex: Female

DRUGS (2)
  1. ENBREL [Suspect]
     Active Substance: ETANERCEPT
     Indication: PSORIATIC ARTHROPATHY
  2. ENBREL [Suspect]
     Active Substance: ETANERCEPT
     Indication: PSORIASIS
     Dosage: 50 MG, QWK
     Route: 065
     Dates: start: 2012

REACTIONS (9)
  - Renal pain [Not Recovered/Not Resolved]
  - Hearing impaired [Unknown]
  - Amnesia [Unknown]
  - Corrective lens user [Unknown]
  - Ear pain [Not Recovered/Not Resolved]
  - Hearing aid user [Unknown]
  - Drug dose omission [Unknown]
  - Insomnia [Unknown]
  - Anxiety [Unknown]
